FAERS Safety Report 20443800 (Version 1)
Quarter: 2022Q1

REPORT INFORMATION
  Report Type: Spontaneous
  Country: US (occurrence: None)
  Receive Date: 20220207
  Receipt Date: 20220207
  Transmission Date: 20220423
  Serious: No
  Sender: FDA-Public Use
  Company Number: None

PATIENT
  Age: 43 Year
  Sex: Female
  Weight: 53.55 kg

DRUGS (5)
  1. HYDROCORTISONE [Suspect]
     Active Substance: HYDROCORTISONE
     Indication: Addison^s disease
     Dosage: OTHER QUANTITY : 1 TABLET(S);?FREQUENCY : 4 TIMES A DAY;?
     Route: 048
  2. FLUDROCORTISONE [Concomitant]
     Active Substance: FLUDROCORTISONE
  3. LIOTHYRONINE [Concomitant]
     Active Substance: LIOTHYRONINE
  4. VITAMIN D [Concomitant]
     Active Substance: VITAMIN D NOS
  5. DIGESTIZYMES [Concomitant]

REACTIONS (64)
  - Aggression [None]
  - Anxiety [None]
  - Vision blurred [None]
  - Ocular hyperaemia [None]
  - Eye irritation [None]
  - Eye pruritus [None]
  - Urine output decreased [None]
  - Dizziness [None]
  - Dry mouth [None]
  - Ear congestion [None]
  - Palpitations [None]
  - Headache [None]
  - Irritability [None]
  - Depression [None]
  - Mood altered [None]
  - Hypoaesthesia [None]
  - Hypoaesthesia [None]
  - Paraesthesia [None]
  - Eyelid pain [None]
  - Restlessness [None]
  - Sneezing [None]
  - Tremor [None]
  - Oropharyngeal pain [None]
  - Peripheral swelling [None]
  - Peripheral swelling [None]
  - Peripheral swelling [None]
  - Peripheral swelling [None]
  - Mental impairment [None]
  - Speech disorder [None]
  - Gait disturbance [None]
  - Dyspnoea [None]
  - Fatigue [None]
  - Asthenia [None]
  - Back pain [None]
  - Faeces discoloured [None]
  - Dysphonia [None]
  - Skin discolouration [None]
  - Visual impairment [None]
  - Diarrhoea [None]
  - Eye pain [None]
  - Breath odour [None]
  - Dyspepsia [None]
  - Dyspepsia [None]
  - Hunger [None]
  - Thirst [None]
  - Decreased appetite [None]
  - Back pain [None]
  - Menstruation irregular [None]
  - Myalgia [None]
  - Myalgia [None]
  - Muscle atrophy [None]
  - Muscular weakness [None]
  - Nausea [None]
  - Back pain [None]
  - Musculoskeletal chest pain [None]
  - Pain in extremity [None]
  - Pain in extremity [None]
  - Dysuria [None]
  - Rash [None]
  - Abdominal pain upper [None]
  - Muscle spasms [None]
  - Impaired healing [None]
  - Swollen tongue [None]
  - Fat tissue increased [None]
